FAERS Safety Report 5392834-4 (Version None)
Quarter: 2007Q3

REPORT INFORMATION
  Report Type: 
  Country: None (occurrence: None)
  Receive Date: 20070718
  Receipt Date: 20070711
  Transmission Date: 20080115
  Serious: Yes (Other)
  Sender: FDA-Public Use
  Company Number: 2007S1000138

PATIENT
  Age: 2 Month
  Sex: Female
  Weight: 2.13 kg

DRUGS (3)
  1. NITRIC OXIDE [Suspect]
     Indication: LUNG DISORDER
     Dosage: 5 PPM; CONT; INH
     Route: 055
     Dates: start: 20070103, end: 20070124
  2. NITRIC OXIDE [Suspect]
     Indication: PROPHYLAXIS
     Dosage: 5 PPM; CONT; INH
     Route: 055
     Dates: start: 20070103, end: 20070124
  3. CAFFEINE [Concomitant]

REACTIONS (1)
  - RETINOPATHY OF PREMATURITY [None]
